FAERS Safety Report 9523568 (Version 5)
Quarter: 2013Q4

REPORT INFORMATION
  Report Type: Report from Study
  Country: ES (occurrence: ES)
  Receive Date: 20130913
  Receipt Date: 20131025
  Transmission Date: 20140711
  Serious: Yes (Other)
  Sender: FDA-Public Use
  Company Number: PHHO2013ES011546

PATIENT
  Sex: 0

DRUGS (16)
  1. FUROSEMIDE [Suspect]
     Indication: HYPERTENSION
     Dosage: 40 MG, QD
  2. RAMIPRIL [Suspect]
     Indication: HYPERTENSION
     Dosage: 2.5 MG, QD
  3. INC424 [Suspect]
     Indication: MYELOFIBROSIS
     Dosage: 20 MG, BID
     Route: 048
     Dates: start: 20130208, end: 20130307
  4. INC424 [Suspect]
     Dosage: 5 MG, BID
     Route: 048
     Dates: start: 20130308, end: 20130315
  5. INC424 [Suspect]
     Dosage: 15 MG, BID
     Route: 048
     Dates: start: 20130523, end: 20130626
  6. INC424 [Suspect]
     Dosage: 20 MG, BID
     Route: 048
     Dates: start: 20130627, end: 20130723
  7. INC424 [Suspect]
     Dosage: 15 MG, BID
     Route: 048
     Dates: start: 20130724, end: 20130820
  8. INC424 [Suspect]
     Dosage: 20 MG, BID
     Route: 048
     Dates: start: 20130821
  9. ASPIRIN [Suspect]
     Indication: ANTIPLATELET THERAPY
     Dosage: 100 MG, QD
  10. NSAID^S [Suspect]
  11. MESALAMINE [Concomitant]
     Indication: COLITIS ULCERATIVE
     Dosage: 500 MG, QD
  12. TARDYFERON [Concomitant]
     Indication: ANAEMIA
     Dosage: 80 MG, BID
  13. BISOPROLOL [Concomitant]
     Indication: HYPERTENSION
     Dosage: 2.5 MG, BID
  14. RAMIPRIL [Concomitant]
     Indication: HYPERTENSION
     Dosage: 2.5 MG, BID
  15. OMEPRAZOLE [Concomitant]
     Indication: GASTRITIS PROPHYLAXIS
     Dosage: 20 MG, QD
  16. ALLOPURINOL [Concomitant]
     Indication: PROPHYLAXIS
     Dosage: 300 MG, QD

REACTIONS (2)
  - Renal failure acute [Recovered/Resolved]
  - Back pain [Recovered/Resolved]
